FAERS Safety Report 9723314 (Version 6)
Quarter: 2014Q1

REPORT INFORMATION
  Report Type: Spontaneous
  Country: US (occurrence: US)
  Receive Date: 20131202
  Receipt Date: 20140130
  Transmission Date: 20141002
  Serious: No
  Sender: FDA-Public Use
  Company Number: US-009507513-1311USA008506

PATIENT
  Age: 67 Year
  Sex: Male
  Weight: 68.93 kg

DRUGS (12)
  1. PEGINTRON [Suspect]
     Indication: HEPATITIS C
     Dosage: REDIPEN, 150 MICROGRAM, UNK
     Route: 058
     Dates: start: 20131105
  2. PEGINTRON [Suspect]
     Dosage: REDIPEN, 120 MICROGRAM/0.4 CC
     Dates: start: 20131118
  3. PEGINTRON [Suspect]
     Dosage: UNK
     Route: 058
  4. REBETOL [Suspect]
     Indication: HEPATITIS C
     Dosage: 3 DF, BID
     Route: 048
     Dates: start: 20131105
  5. REBETOL [Suspect]
     Dosage: 4 DF, DAILY
     Route: 048
  6. VICTRELIS [Suspect]
     Indication: HEPATITIS C
     Dosage: 200 MG, Q8H
     Route: 048
     Dates: start: 20131203
  7. OMEPRAZOLE [Concomitant]
     Dosage: 20 MG, QD
  8. PRAVASTATIN SODIUM [Concomitant]
     Dosage: 10 MG, QD
  9. LISINOPRIL [Concomitant]
     Dosage: 20 MG, QD
  10. HYDRALAZINE [Concomitant]
     Dosage: 10 MG, TID
  11. ASPIRIN [Concomitant]
     Dosage: 82 MG, QD
  12. VITAMIN D (UNSPECIFIED) [Concomitant]
     Dosage: 2000 UNITS, QD

REACTIONS (19)
  - Blood test abnormal [Unknown]
  - Injection site haemorrhage [Recovered/Resolved]
  - Speech disorder [Unknown]
  - Blood test abnormal [Unknown]
  - Injection site haemorrhage [Recovered/Resolved]
  - Injection site erythema [Unknown]
  - Injection site pruritus [Unknown]
  - Drug hypersensitivity [Unknown]
  - Injection site erythema [Unknown]
  - White blood cell count decreased [Unknown]
  - Pharyngeal oedema [Unknown]
  - Influenza like illness [Unknown]
  - Alopecia [Unknown]
  - Weight decreased [Unknown]
  - Fatigue [Unknown]
  - Dysgeusia [Unknown]
  - White blood cell count decreased [Unknown]
  - Fatigue [Unknown]
  - Dyspnoea [Unknown]
